FAERS Safety Report 20779895 (Version 1)
Quarter: 2022Q2

REPORT INFORMATION
  Report Type: Spontaneous
  Country: US (occurrence: US)
  Receive Date: 20220503
  Receipt Date: 20220503
  Transmission Date: 20220721
  Serious: Yes (Other)
  Sender: FDA-Public Use
  Company Number: US-ALKERMES INC.-ALK-2022-002092

PATIENT
  Age: 40 Year
  Sex: Female

DRUGS (3)
  1. VIVITROL [Suspect]
     Active Substance: NALTREXONE
     Indication: Alcohol use
     Dosage: 380 MILLIGRAM, QMO
     Route: 030
     Dates: start: 20220425
  2. VIVITROL [Suspect]
     Active Substance: NALTREXONE
     Dosage: 380 MILLIGRAM, QMO
     Route: 030
     Dates: start: 202012, end: 202012
  3. NALTREXONE [Concomitant]
     Active Substance: NALTREXONE
     Indication: Product used for unknown indication
     Route: 048

REACTIONS (5)
  - Injection site abscess [Unknown]
  - Injection site mass [Unknown]
  - Injection site infection [Unknown]
  - Injection site reaction [Unknown]
  - Alcoholism [Unknown]

NARRATIVE: CASE EVENT DATE: 20220401
